FAERS Safety Report 4626779-1 (Version None)
Quarter: 2005Q2

REPORT INFORMATION
  Report Type: 
  Country: None (occurrence: None)
  Receive Date: 20050405
  Receipt Date: 20050326
  Transmission Date: 20051028
  Serious: Yes (Other)
  Sender: FDA-Public Use
  Company Number: PHBS2005UA04366

PATIENT
  Sex: Female

DRUGS (1)
  1. MIACALCIN [Suspect]
     Indication: OSTEOPOROSIS
     Dosage: 100 IU, QD
     Dates: start: 20030101

REACTIONS (4)
  - ANGIONEUROTIC OEDEMA [None]
  - BODY TEMPERATURE INCREASED [None]
  - DYSPNOEA [None]
  - FACE OEDEMA [None]
